FAERS Safety Report 20695048 (Version 1)
Quarter: 2022Q2

REPORT INFORMATION
  Report Type: Spontaneous
  Country: US (occurrence: None)
  Receive Date: 20220408
  Receipt Date: 20220408
  Transmission Date: 20220721
  Serious: Yes (unspecified)
  Sender: FDA-Public Use
  Company Number: None

PATIENT
  Age: 52 Year
  Sex: Female

DRUGS (2)
  1. PROMETHAZINE HYDROCHLORIDE [Suspect]
     Active Substance: PROMETHAZINE HYDROCHLORIDE
     Dosage: 25MCG 3 TIMES A DAY ORAL?
     Route: 048
  2. PAROXETINE [Suspect]
     Active Substance: PAROXETINE

REACTIONS (3)
  - Intercepted product dispensing error [None]
  - Product label confusion [None]
  - Product physical issue [None]

NARRATIVE: CASE EVENT DATE: 20220407
